FAERS Safety Report 25908086 (Version 2)
Quarter: 2025Q4

REPORT INFORMATION
  Report Type: Spontaneous
  Country: GB (occurrence: GB)
  Receive Date: 20251010
  Receipt Date: 20251014
  Transmission Date: 20260118
  Serious: Yes (Hospitalization, Disabling, Other)
  Sender: ASTELLAS
  Company Number: GB-MHRA-WEBRADR-202510071300378010-YHSFB

PATIENT
  Age: 68 Year
  Sex: Female
  Weight: 20 kg

DRUGS (1)
  1. XTANDI [Suspect]
     Active Substance: ENZALUTAMIDE
     Indication: Anal cancer
     Route: 065
     Dates: start: 20250801, end: 20251007

REACTIONS (8)
  - Libido increased [Not Recovered/Not Resolved]
  - Vulvovaginal swelling [Unknown]
  - Proctalgia [Unknown]
  - Blood pressure decreased [Unknown]
  - Vulvovaginal pruritus [Unknown]
  - Off label use [Unknown]
  - Off label use [Unknown]
  - Product use issue [Unknown]

NARRATIVE: CASE EVENT DATE: 20250101
